FAERS Safety Report 4537777-0 (Version None)
Quarter: 2004Q4

REPORT INFORMATION
  Report Type: 
  Country: None (occurrence: None)
  Receive Date: 20041224
  Receipt Date: 20041217
  Transmission Date: 20050328
  Serious: Yes (Hospitalization, Other)
  Sender: FDA-Public Use
  Company Number: IT-MERCK-0412ITA00034

PATIENT
  Age: 66 Year
  Sex: Male

DRUGS (10)
  1. VIOXX [Suspect]
     Indication: ARTHRITIS
     Route: 065
     Dates: start: 20021001, end: 20040930
  2. CARVEDILOL [Concomitant]
     Route: 048
  3. ACENOCOUMAROL [Concomitant]
     Route: 048
  4. OMEPRAZOLE [Concomitant]
     Route: 048
  5. SUCRALFATE [Concomitant]
     Route: 048
  6. AMIODARONE HYDROCHLORIDE [Concomitant]
     Route: 048
  7. AMIODARONE HYDROCHLORIDE [Concomitant]
     Route: 048
  8. LORAZEPAM [Concomitant]
     Route: 048
     Dates: start: 20041001
  9. CALCIUM CARBONATE [Concomitant]
     Route: 065
     Dates: start: 20041001
  10. CLOPIDOGREL BISULFATE [Concomitant]
     Route: 048

REACTIONS (8)
  - ACUTE MYOCARDIAL INFARCTION [None]
  - ANGINA PECTORIS [None]
  - ANXIETY [None]
  - CORONARY ARTERY OCCLUSION [None]
  - DEPRESSION [None]
  - DILATATION VENTRICULAR [None]
  - PALPITATIONS [None]
  - VASCULAR GRAFT OCCLUSION [None]
